FAERS Safety Report 25123674 (Version 1)
Quarter: 2025Q1

REPORT INFORMATION
  Report Type: Spontaneous
  Country: US (occurrence: None)
  Receive Date: 20250325
  Receipt Date: 20250325
  Transmission Date: 20250409
  Serious: Yes (Other)
  Sender: FDA-CTU
  Company Number: None

PATIENT
  Age: 78 Year
  Sex: Male
  Weight: 70.31 kg

DRUGS (10)
  1. METOPROLOL TARTRATE [Suspect]
     Active Substance: METOPROLOL TARTRATE
     Indication: Prophylaxis
     Dosage: FREQUENCY : TWICE A DAY;?
     Route: 048
     Dates: start: 20250212, end: 20250310
  2. ASPIRIN [Concomitant]
     Active Substance: ASPIRIN
  3. ATORVASTATIN [Concomitant]
     Active Substance: ATORVASTATIN
  4. CLOPIDOGREL BISULFATE [Concomitant]
     Active Substance: CLOPIDOGREL BISULFATE
  5. ENALAPRIL [Concomitant]
     Active Substance: ENALAPRIL
  6. METFORMIN500MG [Concomitant]
  7. NORVASC [Concomitant]
     Active Substance: AMLODIPINE BESYLATE
  8. Magnesium Chelated [Concomitant]
  9. Multivitamin for men whole foods [Concomitant]
  10. Digestive Enzymes-Organic Whole Foods [Concomitant]

REACTIONS (12)
  - Drug ineffective [None]
  - Asthenia [None]
  - Fatigue [None]
  - Asthenia [None]
  - Somnolence [None]
  - Loss of personal independence in daily activities [None]
  - Apathy [None]
  - Peripheral swelling [None]
  - Erythema [None]
  - Livedo reticularis [None]
  - Cellulitis [None]
  - Blood glucose increased [None]

NARRATIVE: CASE EVENT DATE: 20250203
